FAERS Safety Report 11677527 (Version 3)
Quarter: 2016Q1

REPORT INFORMATION
  Report Type: Spontaneous
  Country: US (occurrence: US)
  Receive Date: 20151028
  Receipt Date: 20160115
  Transmission Date: 20160525
  Serious: Yes (Other)
  Sender: FDA-Public Use
  Company Number: US-TEVA-603130USA

PATIENT
  Sex: Male
  Weight: 83 kg

DRUGS (7)
  1. LIPITOR [Concomitant]
     Active Substance: ATORVASTATIN CALCIUM
     Dosage: 10 MILLIGRAM DAILY;
  2. LYRICA [Suspect]
     Active Substance: PREGABALIN
     Indication: PAIN
  3. CIALIS [Suspect]
     Active Substance: TADALAFIL
     Indication: SEXUAL DYSFUNCTION
  4. BACLOFEN. [Suspect]
     Active Substance: BACLOFEN
     Indication: SPINAL CORD INJURY
  5. LYRICA [Suspect]
     Active Substance: PREGABALIN
     Indication: BURNING SENSATION
     Dosage: 600 MILLIGRAM DAILY;
     Route: 048
     Dates: start: 2011
  6. CIALIS [Suspect]
     Active Substance: TADALAFIL
     Indication: MICTURITION DISORDER
     Dosage: 5 MILLIGRAM DAILY;
     Route: 065
     Dates: start: 2013
  7. BACLOFEN. [Suspect]
     Active Substance: BACLOFEN
     Indication: MUSCLE RELAXANT THERAPY
     Dosage: 80 MILLIGRAM DAILY;
     Route: 065
     Dates: start: 2002

REACTIONS (3)
  - Dysuria [Unknown]
  - Intentional product misuse [Unknown]
  - Suicidal ideation [Recovered/Resolved]
